FAERS Safety Report 9892086 (Version 1)
Quarter: 2014Q1

REPORT INFORMATION
  Report Type: Spontaneous
  Country: US (occurrence: US)
  Receive Date: 20140212
  Receipt Date: 20140212
  Transmission Date: 20141002
  Serious: Yes (Other)
  Sender: FDA-Public Use
  Company Number: PHEH2014US002797

PATIENT
  Sex: Male

DRUGS (5)
  1. EXELON PATCH [Suspect]
     Indication: DEMENTIA ALZHEIMER^S TYPE
     Dosage: 4.6 MG, QD
     Route: 062
  2. EXELON PATCH [Suspect]
     Dosage: 9.5 MG, QD
     Route: 062
  3. EXELON PATCH [Suspect]
     Dosage: 9.5 MG, QD
     Route: 062
  4. ARICEPT [Suspect]
     Dosage: UNK UKN, UNK
  5. MULTI-VIT [Concomitant]
     Dosage: UNK UKN, UNK

REACTIONS (4)
  - Dementia Alzheimer^s type [Unknown]
  - Condition aggravated [Unknown]
  - Memory impairment [Unknown]
  - Insomnia [Unknown]
